FAERS Safety Report 22007098 (Version 2)
Quarter: 2023Q1

REPORT INFORMATION
  Report Type: Report from Study
  Country: AU (occurrence: None)
  Receive Date: 20230217
  Receipt Date: 20230303
  Transmission Date: 20230418
  Serious: Yes (Hospitalization)
  Sender: FDA-Public Use
  Company Number: AU-Eisai Medical Research-EC-2023-134459

PATIENT
  Age: 66 Year
  Sex: Male
  Weight: 49.6 kg

DRUGS (15)
  1. LENVATINIB [Suspect]
     Active Substance: LENVATINIB
     Indication: Squamous cell carcinoma of head and neck
     Route: 048
     Dates: start: 20210304, end: 20230120
  2. PEMBROLIZUMAB [Suspect]
     Active Substance: PEMBROLIZUMAB
     Indication: Squamous cell carcinoma of head and neck
     Route: 041
     Dates: start: 20210304, end: 20221229
  3. PEMBROLIZUMAB [Suspect]
     Active Substance: PEMBROLIZUMAB
     Route: 041
     Dates: start: 20220120, end: 20220120
  4. ACETAMINOPHEN [Concomitant]
     Active Substance: ACETAMINOPHEN
     Dates: start: 20210315
  5. DOCUSATE SODIUM\SENNOSIDES A AND B [Concomitant]
     Active Substance: DOCUSATE SODIUM\SENNOSIDES A AND B
     Dates: start: 20210315
  6. NILSTAT [NYSTATIN] [Concomitant]
     Dates: start: 20210315
  7. PREGABALIN [Concomitant]
     Active Substance: PREGABALIN
     Dates: start: 20210318
  8. MS CONTIN [Concomitant]
     Active Substance: MORPHINE SULFATE
     Dates: start: 20210318
  9. MORPHINE HYDROCHLORIDE [Concomitant]
     Active Substance: MORPHINE HYDROCHLORIDE
     Dates: start: 20210319
  10. MELATONIN [Concomitant]
     Active Substance: MELATONIN
     Dates: start: 20210811
  11. THIAMINE [Concomitant]
     Active Substance: THIAMINE
     Dates: start: 20210812
  12. RISPERIDONE [Concomitant]
     Active Substance: RISPERIDONE
     Dates: start: 20211112
  13. LEVOTHYROXINE SODIUM [Concomitant]
     Active Substance: LEVOTHYROXINE SODIUM
     Dates: start: 20210706
  14. PROCTOSEDYL N [Concomitant]
     Dates: start: 20230207
  15. PERINDOPRIL [Concomitant]
     Active Substance: PERINDOPRIL
     Dates: start: 20230120

REACTIONS (1)
  - Rectal abscess [Not Recovered/Not Resolved]

NARRATIVE: CASE EVENT DATE: 20230210
